FAERS Safety Report 15293810 (Version 2)
Quarter: 2018Q3

REPORT INFORMATION
  Report Type: Spontaneous
  Country: PT (occurrence: PT)
  Receive Date: 20180820
  Receipt Date: 20180906
  Transmission Date: 20181010
  Serious: Yes (Hospitalization, Other)
  Sender: FDA-Public Use
  Company Number: PT-AUROBINDO-AUR-APL-2018-041948

PATIENT
  Age: 8 Year
  Sex: Female

DRUGS (3)
  1. AMOXICILLIN. [Suspect]
     Active Substance: AMOXICILLIN
     Indication: PHARYNGITIS BACTERIAL
  2. AMOXICILLIN. [Suspect]
     Active Substance: AMOXICILLIN
     Indication: PHARYNGITIS
     Dosage: 50 MILLIGRAM/KILOGRAM, DAILY
     Route: 048
  3. PREDNISOLONE. [Concomitant]
     Active Substance: PREDNISOLONE
     Indication: PRODUCT USED FOR UNKNOWN INDICATION
     Dosage: 1 MG/KG
     Route: 042

REACTIONS (10)
  - Lymphocytosis [Unknown]
  - Drug ineffective [Unknown]
  - Lymphocyte morphology abnormal [Unknown]
  - Infectious mononucleosis [Unknown]
  - Malaise [Unknown]
  - Lymphadenopathy [Unknown]
  - Mononucleosis heterophile test positive [Unknown]
  - Muscle tightness [Unknown]
  - Tonsillar exudate [Unknown]
  - Odynophagia [Unknown]
